FAERS Safety Report 8112281-1 (Version None)
Quarter: 2012Q1

REPORT INFORMATION
  Report Type: 
  Country: None (occurrence: None)
  Receive Date: 20120203
  Receipt Date: 20120203
  Transmission Date: 20120608
  Serious: Yes (Other)
  Sender: FDA-Public Use
  Company Number: None

PATIENT
  Age: 37 Year
  Sex: Male
  Weight: 101 kg

DRUGS (1)
  1. BACLOFEN [Suspect]

REACTIONS (5)
  - UNRESPONSIVE TO STIMULI [None]
  - BLOOD CREATINE INCREASED [None]
  - MIOSIS [None]
  - DIZZINESS [None]
  - PYREXIA [None]
